FAERS Safety Report 16863137 (Version 1)
Quarter: 2019Q3

REPORT INFORMATION
  Report Type: Spontaneous
  Country: IN (occurrence: IN)
  Receive Date: 20190927
  Receipt Date: 20190927
  Transmission Date: 20191005
  Serious: Yes (Hospitalization)
  Sender: FDA-Public Use
  Company Number: IN-ASTRAZENECA-2019SF34522

PATIENT
  Sex: Male

DRUGS (1)
  1. BRILINTA [Suspect]
     Active Substance: TICAGRELOR
     Dosage: 90.0MG UNKNOWN
     Route: 048
     Dates: start: 20190912, end: 20190912

REACTIONS (3)
  - Gastric ulcer [Unknown]
  - Gingival bleeding [Unknown]
  - Lower respiratory tract infection [Unknown]

NARRATIVE: CASE EVENT DATE: 20190914
